FAERS Safety Report 5721380-0 (Version None)
Quarter: 2008Q2

REPORT INFORMATION
  Report Type: 
  Country: None (occurrence: None)
  Receive Date: 20080429
  Receipt Date: 20080418
  Transmission Date: 20081010
  Serious: Yes (Other)
  Sender: FDA-Public Use
  Company Number: GR-NOVOPROD-272826

PATIENT
  Age: 7 Year
  Sex: Female

DRUGS (2)
  1. HUMALOG PEN [Suspect]
     Indication: TYPE 1 DIABETES MELLITUS
     Dates: start: 20021123, end: 20050921
  2. PROTAPHANE                         /00646002/ [Suspect]
     Indication: TYPE 1 DIABETES MELLITUS
     Dates: start: 20021123, end: 20050921

REACTIONS (5)
  - ABDOMINAL PAIN [None]
  - HEADACHE [None]
  - INJECTION SITE ERYTHEMA [None]
  - INJECTION SITE INDURATION [None]
  - VASCULITIS [None]
